FAERS Safety Report 8418699-1 (Version None)
Quarter: 2012Q2

REPORT INFORMATION
  Report Type: 
  Country: None (occurrence: None)
  Receive Date: 20120607
  Receipt Date: 20120531
  Transmission Date: 20120825
  Serious: Yes (Other)
  Sender: FDA-Public Use
  Company Number: JP-PFIZER INC-2012101564

PATIENT
  Age: 49 Year
  Sex: Female

DRUGS (3)
  1. LYRICA [Suspect]
     Dosage: 100 MG, DAILY (25MG IN MORNING, 75MG IN THE AFTERNOON)
     Route: 048
  2. LYRICA [Suspect]
     Dosage: 75 MG, 1X/DAY
  3. LYRICA [Suspect]
     Indication: PAIN
     Dosage: 75 MG, 2X/DAY
     Route: 048
     Dates: start: 20120301

REACTIONS (2)
  - EYE DISCHARGE [None]
  - OCULAR HYPERAEMIA [None]
